FAERS Safety Report 7276710-8 (Version None)
Quarter: 2011Q1

REPORT INFORMATION
  Report Type: 
  Country: None (occurrence: None)
  Receive Date: 20110204
  Receipt Date: 20110203
  Transmission Date: 20110831
  Serious: Yes (Life-Threatening, Hospitalization, Other)
  Sender: FDA-Public Use
  Company Number: PL-PFIZER INC-2007077600

PATIENT
  Age: 62 Year
  Sex: Male
  Weight: 84 kg

DRUGS (5)
  1. SUNITINIB MALATE [Suspect]
     Indication: RENAL CELL CARCINOMA
     Dosage: 50 MG, DAILY
     Route: 048
     Dates: start: 20060317, end: 20070829
  2. LASIX [Concomitant]
     Route: 048
     Dates: start: 20070327
  3. DILATREND [Concomitant]
     Route: 048
     Dates: start: 20070327
  4. SERTRALINE [Concomitant]
     Route: 048
     Dates: start: 20070327
  5. SUNITINIB MALATE [Suspect]
     Dosage: 37.5 MG, DAILY
     Route: 048
     Dates: start: 20061103

REACTIONS (1)
  - EMBOLISM ARTERIAL [None]
